FAERS Safety Report 5523387-5 (Version None)
Quarter: 2007Q4

REPORT INFORMATION
  Report Type: 
  Country: None (occurrence: None)
  Receive Date: 20071121
  Receipt Date: 20071119
  Transmission Date: 20080405
  Serious: Yes (Hospitalization)
  Sender: FDA-Public Use
  Company Number: FR-BRISTOL-MYERS SQUIBB COMPANY-13988027

PATIENT
  Age: 95 Year
  Sex: Male

DRUGS (7)
  1. COAPROVEL TABS 300MG/12.5MG [Suspect]
     Dates: end: 20070822
  2. MEDIATENSYL [Suspect]
     Dates: end: 20070822
  3. COVERSYL [Suspect]
     Dates: end: 20070822
  4. PLAVIX [Concomitant]
  5. TAHOR [Concomitant]
  6. AMARYL [Concomitant]
  7. TRIMETAZIDINE [Concomitant]

REACTIONS (3)
  - BLOOD PRESSURE DECREASED [None]
  - BRONCHOPNEUMOPATHY [None]
  - FALL [None]
